FAERS Safety Report 5097544-9 (Version None)
Quarter: 2006Q3

REPORT INFORMATION
  Report Type: 
  Country: None (occurrence: None)
  Receive Date: 20060901
  Receipt Date: 20060822
  Transmission Date: 20061208
  Serious: Yes (Hospitalization, Other)
  Sender: FDA-Public Use
  Company Number: FR200608004703

PATIENT
  Age: 50 Year
  Sex: Male

DRUGS (4)
  1. ZYPREXA [Suspect]
     Indication: MANIA
     Dosage: 20 MG DAILY (1/D) ORAL
     Route: 048
     Dates: start: 20030101, end: 20060801
  2. LITHIUM CARBONATE [Concomitant]
  3. LIORESAL [Concomitant]
  4. GLEEVEC [Concomitant]

REACTIONS (3)
  - DIABETES MELLITUS INSULIN-DEPENDENT [None]
  - ESCHAR [None]
  - PRESCRIBED OVERDOSE [None]
